FAERS Safety Report 10250605 (Version 2)
Quarter: 2014Q2

REPORT INFORMATION
  Report Type: Spontaneous
  Country: US (occurrence: US)
  Receive Date: 20140620
  Receipt Date: 20140626
  Transmission Date: 20141212
  Serious: Yes (Hospitalization)
  Sender: FDA-Public Use
  Company Number: US-GLAXOSMITHKLINE-A1077786A

PATIENT
  Age: 80 Year
  Sex: Male

DRUGS (2)
  1. FLOLAN [Suspect]
     Indication: PULMONARY ARTERIAL HYPERTENSION
     Dosage: 18NGKM CONTINUOUS
     Route: 042
     Dates: start: 20140529
  2. WARFARIN [Concomitant]

REACTIONS (3)
  - Dyspnoea [Unknown]
  - Investigation [Recovered/Resolved]
  - Hospice care [Unknown]
